FAERS Safety Report 5063960-4 (Version None)
Quarter: 2006Q3

REPORT INFORMATION
  Report Type: 
  Country: None (occurrence: None)
  Receive Date: 20060727
  Receipt Date: 20060629
  Transmission Date: 20061208
  Serious: Yes (Life-Threatening, Hospitalization, Disabling, Other)
  Sender: FDA-Public Use
  Company Number: US-MERCK-0606USA05751

PATIENT
  Age: 66 Year
  Sex: Female
  Weight: 69 kg

DRUGS (11)
  1. FOSAMAX [Suspect]
     Indication: OSTEOPOROSIS
     Route: 048
     Dates: start: 20060619, end: 20060626
  2. ASPIRIN [Concomitant]
     Route: 065
  3. INSULIN [Concomitant]
     Indication: DIABETES MELLITUS INSULIN-DEPENDENT
     Route: 051
  4. LOTREL [Concomitant]
     Route: 065
  5. SYNTHROID [Concomitant]
     Route: 065
  6. IRON (UNSPECIFIED) [Concomitant]
     Route: 065
  7. HYDROCHLOROTHIAZIDE [Concomitant]
     Route: 065
  8. ZOCOR [Concomitant]
     Route: 048
  9. ASCORBIC ACID [Concomitant]
     Route: 065
  10. CALCIUM (UNSPECIFIED) [Concomitant]
     Route: 065
  11. ACTONEL [Concomitant]
     Route: 065
     Dates: end: 20060601

REACTIONS (2)
  - GASTRIC ULCER HAEMORRHAGE [None]
  - HELICOBACTER INFECTION [None]
